FAERS Safety Report 23059928 (Version 2)
Quarter: 2023Q4

REPORT INFORMATION
  Report Type: Report from Study
  Country: US (occurrence: US)
  Receive Date: 20231012
  Receipt Date: 20231019
  Transmission Date: 20240110
  Serious: Yes (Other)
  Sender: FDA-Public Use
  Company Number: US-Vifor (International) Inc.-VIT-2023-07489

PATIENT
  Sex: Female
  Weight: 34.322 kg

DRUGS (1)
  1. VELPHORO [Suspect]
     Active Substance: SUCROFERRIC OXYHYDROXIDE
     Indication: Product used for unknown indication
     Dosage: STARTED WITH 1 TABLET TWICE DAILY
     Route: 048

REACTIONS (2)
  - Abdominal discomfort [Recovered/Resolved]
  - Off label use [Unknown]
